FAERS Safety Report 7046708-3 (Version None)
Quarter: 2010Q4

REPORT INFORMATION
  Report Type: 
  Country: None (occurrence: None)
  Receive Date: 20101015
  Receipt Date: 20101005
  Transmission Date: 20110411
  Serious: Yes (Other)
  Sender: FDA-Public Use
  Company Number: US-JNJFOC-20101001770

PATIENT
  Sex: Female
  Weight: 52.16 kg

DRUGS (3)
  1. ULTRAM [Suspect]
     Indication: MIGRAINE
     Dosage: 4 TO 6 TIMES PER DAY AS NEEDED
     Route: 048
  2. TRAMADOL HCL [Suspect]
     Indication: MIGRAINE
     Dosage: 4 TO 6 TIMES PER DAY AS NEEDED
     Route: 048
  3. ATENOLOL [Concomitant]
     Indication: HYPERTENSION
     Dosage: 1 PER DAY
     Route: 048

REACTIONS (4)
  - CONVULSION [None]
  - FIBROMYALGIA [None]
  - INAPPROPRIATE SCHEDULE OF DRUG ADMINISTRATION [None]
  - RHEUMATOID ARTHRITIS [None]
